FAERS Safety Report 6094616-7 (Version None)
Quarter: 2009Q1

REPORT INFORMATION
  Report Type: 
  Country: None (occurrence: None)
  Receive Date: 20090226
  Receipt Date: 20090218
  Transmission Date: 20090719
  Serious: Yes (Other)
  Sender: FDA-Public Use
  Company Number: PHBS2009GB00871

PATIENT
  Age: 3 Year

DRUGS (12)
  1. KETOTIFEN HYDROGEN FUMARATE [Suspect]
  2. CETRIZINE [Suspect]
  3. TRIMEPRAZINE TAB [Suspect]
  4. CIMETIDINE [Suspect]
  5. CHLORPHENTERMINE 65MG TAB [Suspect]
  6. CROMOLYN SODIUM [Suspect]
  7. ADRENALINE [Suspect]
  8. MIDAZOLAM HCL [Concomitant]
  9. HYDROCORTISONE [Concomitant]
  10. PROPOFOL [Concomitant]
     Indication: INDUCTION AND MAINTENANCE OF ANAESTHESIA
  11. REMIFENTANIL [Concomitant]
     Indication: INTRAOPERATIVE CARE
  12. PARACETAMOL [Concomitant]
     Indication: POSTOPERATIVE ANALGESIA

REACTIONS (4)
  - DIARRHOEA [None]
  - ENDOSCOPY UPPER GASTROINTESTINAL TRACT [None]
  - FLUSHING [None]
  - HYPOTONIA [None]
